FAERS Safety Report 8101499-X (Version None)
Quarter: 2012Q1

REPORT INFORMATION
  Report Type: 
  Country: None (occurrence: None)
  Receive Date: 20120129
  Receipt Date: 20111010
  Transmission Date: 20120608
  Serious: No
  Sender: FDA-Public Use
  Company Number: US-ABBOTT-11P-163-0863075-00

PATIENT
  Age: 71 Year
  Sex: Female

DRUGS (26)
  1. HUMIRA [Suspect]
     Indication: RHEUMATOID ARTHRITIS
     Dates: start: 20111010
  2. FLECTOR [Concomitant]
     Indication: CHONDROPATHY
  3. LIPITOR [Concomitant]
     Indication: PRODUCT USED FOR UNKNOWN INDICATION
     Dosage: ONE AT BEDTIME
  4. MYSOLINE [Concomitant]
     Indication: PRODUCT USED FOR UNKNOWN INDICATION
     Dosage: 20 MG - 2 TAB TWICE DAILY
  5. LYRICA [Concomitant]
     Indication: PRODUCT USED FOR UNKNOWN INDICATION
     Dosage: 1 IN MORNING, 2 AT BEDTIME
  6. METHOCARBAMOL [Concomitant]
     Indication: PRODUCT USED FOR UNKNOWN INDICATION
     Dosage: EVERY 4 HOURS PRN AT BEDTIME
  7. OMEGA Q PLUS [Concomitant]
     Indication: PRODUCT USED FOR UNKNOWN INDICATION
     Dosage: 2 TABLETS DAILY
  8. EFFEXOR [Concomitant]
     Indication: PRODUCT USED FOR UNKNOWN INDICATION
  9. PROTONIX [Concomitant]
     Indication: PRODUCT USED FOR UNKNOWN INDICATION
  10. COMPAZINE [Concomitant]
     Indication: NAUSEA
     Dosage: EVERY 8 HRS. AS NEEDED
  11. ARAVA [Concomitant]
     Indication: PRODUCT USED FOR UNKNOWN INDICATION
  12. FLECTOR [Concomitant]
     Indication: PAIN IN EXTREMITY
  13. ZOLPIDEM TARTRATE [Concomitant]
     Indication: PRODUCT USED FOR UNKNOWN INDICATION
     Dosage: ONE AT BEDTIME
  14. PERCOCET [Concomitant]
     Indication: PAIN
     Dosage: 7.5/325 QID AS REQUIRED
     Route: 048
  15. CALCIUM CARBONATE [Concomitant]
     Indication: PRODUCT USED FOR UNKNOWN INDICATION
  16. PREDNISONE TAB [Concomitant]
     Indication: PRODUCT USED FOR UNKNOWN INDICATION
  17. FLECTOR [Concomitant]
  18. DIPHEN A TROP [Concomitant]
     Indication: DIARRHOEA
     Dosage: AT BEDTIME AS NEEDED
  19. MULTI-VITAMIN [Concomitant]
     Indication: PRODUCT USED FOR UNKNOWN INDICATION
  20. EXCEDRIN [Concomitant]
     Indication: PRODUCT USED FOR UNKNOWN INDICATION
     Dosage: AT BEDTIME AS NEEDED
  21. MIRALAX [Concomitant]
     Indication: PRODUCT USED FOR UNKNOWN INDICATION
  22. CALCITRATE [Concomitant]
     Indication: PRODUCT USED FOR UNKNOWN INDICATION
  23. FLECTOR [Concomitant]
     Indication: ARTHRALGIA
     Dosage: PATCH IN MORNING
  24. VITAMIN D [Concomitant]
     Indication: PRODUCT USED FOR UNKNOWN INDICATION
  25. BONIVA [Concomitant]
     Indication: PRODUCT USED FOR UNKNOWN INDICATION
  26. TRIAMCINOLONE ACETONIDE [Concomitant]
     Indication: VULVOVAGINAL PRURITUS
     Dosage: 2-4 TIMES A DAY
     Route: 067

REACTIONS (2)
  - INCORRECT ROUTE OF DRUG ADMINISTRATION [None]
  - ACCIDENTAL EXPOSURE [None]
